FAERS Safety Report 20571244 (Version 1)
Quarter: 2022Q1

REPORT INFORMATION
  Report Type: Report from Study
  Country: CA (occurrence: CA)
  Receive Date: 20220309
  Receipt Date: 20220309
  Transmission Date: 20220423
  Serious: Yes (Death, Hospitalization)
  Sender: FDA-Public Use
  Company Number: CA-NOVARTISPH-NVSC2022CA007308

PATIENT
  Sex: Female

DRUGS (3)
  1. ELTROMBOPAG OLAMINE [Suspect]
     Active Substance: ELTROMBOPAG OLAMINE
     Indication: Aplastic anaemia
     Dosage: UNK UNK, Q12H
     Route: 065
     Dates: start: 20210914, end: 20211216
  2. ELTROMBOPAG OLAMINE [Suspect]
     Active Substance: ELTROMBOPAG OLAMINE
     Dosage: 50 MG, QD
     Route: 048
     Dates: start: 20220203
  3. TACROLIMUS [Suspect]
     Active Substance: TACROLIMUS
     Indication: Product used for unknown indication
     Dosage: UNK, Q12H
     Route: 065

REACTIONS (5)
  - Immune system disorder [Fatal]
  - Intestinal haemorrhage [Fatal]
  - Tremor [Unknown]
  - Drug ineffective [Unknown]
  - Therapy non-responder [Unknown]
